FAERS Safety Report 13269031 (Version 4)
Quarter: 2017Q3

REPORT INFORMATION
  Report Type: Spontaneous
  Country: US (occurrence: US)
  Receive Date: 20170224
  Receipt Date: 20170822
  Transmission Date: 20171127
  Serious: No
  Sender: FDA-Public Use
  Company Number: US-JNJFOC-20170108783

PATIENT
  Age: 73 Year
  Sex: Male
  Weight: 68.95 kg

DRUGS (10)
  1. DARZALEX [Suspect]
     Active Substance: DARATUMUMAB
     Indication: PLASMA CELL MYELOMA
     Route: 042
     Dates: start: 20170101, end: 20170313
  2. REVLIMID [Suspect]
     Active Substance: LENALIDOMIDE
     Indication: PLASMA CELL MYELOMA
     Route: 048
     Dates: start: 20170705
  3. REVLIMID [Suspect]
     Active Substance: LENALIDOMIDE
     Indication: PLASMA CELL MYELOMA
     Route: 048
     Dates: start: 20090703
  4. DEXAMETHASONE. [Concomitant]
     Active Substance: DEXAMETHASONE
  5. CENTRUM [Concomitant]
     Active Substance: VITAMINS
  6. DARZALEX [Suspect]
     Active Substance: DARATUMUMAB
     Indication: PLASMA CELL MYELOMA
     Route: 042
     Dates: start: 20170705
  7. MORPHINE SULPHATE [Concomitant]
     Active Substance: MORPHINE SULFATE
     Indication: PRODUCT USED FOR UNKNOWN INDICATION
     Dosage: ER
     Route: 048
     Dates: start: 200907
  8. ASPIRIN. [Concomitant]
     Active Substance: ASPIRIN
     Indication: PRODUCT USED FOR UNKNOWN INDICATION
     Route: 065
  9. REVLIMID [Suspect]
     Active Substance: LENALIDOMIDE
     Indication: PLASMA CELL MYELOMA
     Dosage: FOR 21 DAYS
     Route: 048
     Dates: start: 200907
  10. DEXAMETHASONE. [Concomitant]
     Active Substance: DEXAMETHASONE
     Dosage: 5 PER WEEK

REACTIONS (17)
  - Diarrhoea [Recovered/Resolved]
  - Off label use [Unknown]
  - Nausea [Recovering/Resolving]
  - Muscle spasms [Recovered/Resolved]
  - Insomnia [Recovering/Resolving]
  - Nasopharyngitis [Recovered/Resolved]
  - Back pain [Recovering/Resolving]
  - Pruritus [Recovered/Resolved]
  - Fatigue [Recovered/Resolved]
  - Body height decreased [Unknown]
  - Aphonia [Recovered/Resolved]
  - Headache [Not Recovered/Not Resolved]
  - Dyspnoea [Recovered/Resolved]
  - Decreased appetite [Recovered/Resolved]
  - Myalgia [Recovering/Resolving]
  - Constipation [Recovered/Resolved]
  - Erythema [Recovered/Resolved]

NARRATIVE: CASE EVENT DATE: 20170109
